FAERS Safety Report 9521212 (Version 1)
Quarter: 2013Q1

REPORT INFORMATION
  Report Type: Spontaneous
  Country: US (occurrence: None)
  Receive Date: 20130305
  Receipt Date: 20130305
  Transmission Date: 20140127
  Serious: Yes (Other)
  Sender: FDA-Public Use
  Company Number: 163-21880-12080156

PATIENT
  Age: 82 Year
  Sex: Male
  Weight: 108.86 kg

DRUGS (10)
  1. REVLIMID (LENALIDOMIDE) (CAPSULES) [Suspect]
     Indication: PLASMA CELL MYELOMA
     Dosage: 15 MG, 21 IN 28 D, PO
     Route: 048
     Dates: start: 20120709
  2. SIMVASTATIN [Concomitant]
  3. LEVOTHYROXINE (LEVOTHYROXINE) (UNKNOWN) [Concomitant]
  4. WARFARIN (WARFARIN) (UNKNOWN) [Concomitant]
  5. SYMBICORT (SYMBICORT TURBUHALER ^DRACO^) (UNKNOWN) [Concomitant]
  6. ALBUTEROL (SALBUTAMOL) (UNKNOWN) [Concomitant]
  7. ASPIRIN (ACETYLSALICYLIC ACID) (UNKNOWN) (ACETYLSALICYLIC ACID) [Concomitant]
  8. VITAMIN D (ERGOCALCIFEROL) (UNKNOWN) [Concomitant]
  9. CALCIUM (CALCIUM) (UNKNOWN) [Concomitant]
  10. DYAZIDE (DYAZIDE) (UNKNOWN) [Concomitant]

REACTIONS (3)
  - Insomnia [None]
  - Constipation [None]
  - Pain in extremity [None]
